FAERS Safety Report 24051611 (Version 1)
Quarter: 2024Q3

REPORT INFORMATION
  Report Type: Spontaneous
  Country: JP (occurrence: JP)
  Receive Date: 20240704
  Receipt Date: 20240704
  Transmission Date: 20241016
  Serious: Yes (Other)
  Sender: PFIZER
  Company Number: JP-PFIZER INC-202400205447

PATIENT
  Age: 38 Year
  Sex: Female

DRUGS (2)
  1. IBRANCE [Suspect]
     Active Substance: PALBOCICLIB
  2. LETROZOLE [Concomitant]
     Active Substance: LETROZOLE

REACTIONS (1)
  - Haematotoxicity [Recovered/Resolved]
